FAERS Safety Report 7829162-0 (Version None)
Quarter: 2011Q4

REPORT INFORMATION
  Report Type: 
  Country: None (occurrence: None)
  Receive Date: 20111020
  Receipt Date: 20111014
  Transmission Date: 20120403
  Serious: Yes (Other)
  Sender: FDA-Public Use
  Company Number: PHHY2011US55641

PATIENT
  Sex: Female

DRUGS (7)
  1. GILENYA [Suspect]
     Indication: MULTIPLE SCLEROSIS
     Dosage: 0.5 MG, QD
     Route: 048
     Dates: start: 20110620
  2. ASCORBIC ACID [Concomitant]
     Dosage: UNK UKN, OT
  3. VITAMIN B-12 [Concomitant]
     Dosage: UNK UKN, OT
  4. BIOTIN [Concomitant]
     Dosage: UNK UKN, OT
  5. ESTROGENIC SUBSTANCE [Concomitant]
     Dosage: UNK UKN, OT
  6. VITAMIN E [Concomitant]
     Dosage: UNK UKN, OT
  7. LOESTRIN 1.5/30 [Concomitant]
     Dosage: UNK UKN, OT

REACTIONS (6)
  - PALPITATIONS [None]
  - PAIN IN EXTREMITY [None]
  - DYSPNOEA [None]
  - SINUS ARRHYTHMIA [None]
  - CHILLS [None]
  - BACK PAIN [None]
